FAERS Safety Report 6968528-8 (Version None)
Quarter: 2010Q3

REPORT INFORMATION
  Report Type: 
  Country: None (occurrence: None)
  Receive Date: 20100907
  Receipt Date: 20100826
  Transmission Date: 20110219
  Serious: Yes (Other)
  Sender: FDA-Public Use
  Company Number: US-PFIZER INC-2010102072

PATIENT
  Sex: Female
  Weight: 56 kg

DRUGS (2)
  1. CHANTIX [Suspect]
     Indication: SMOKING CESSATION THERAPY
     Dosage: 0.5 MG, 1X/DAY
     Route: 048
     Dates: start: 20100817, end: 20100820
  2. COZAAR [Concomitant]
     Indication: HYPERTENSION
     Dosage: 50 MG, 1X/DAY

REACTIONS (9)
  - CANDIDIASIS [None]
  - FEELING ABNORMAL [None]
  - HYPERTENSION [None]
  - IRRITABILITY [None]
  - OROPHARYNGEAL PAIN [None]
  - PHARYNGEAL OEDEMA [None]
  - RHINALGIA [None]
  - SWOLLEN TONGUE [None]
  - TONGUE INJURY [None]
